FAERS Safety Report 6368948-9 (Version None)
Quarter: 2009Q3

REPORT INFORMATION
  Report Type: 
  Country: None (occurrence: None)
  Receive Date: 20090922
  Receipt Date: 20090911
  Transmission Date: 20100115
  Serious: Yes (Death, Hospitalization, Other)
  Sender: FDA-Public Use
  Company Number: DE-JNJFOC-20080504182

PATIENT
  Age: 58 Year
  Sex: Male
  Weight: 115 kg

DRUGS (9)
  1. INFLIXIMAB [Suspect]
     Indication: COLITIS ULCERATIVE
     Dosage: 2ND DOSE, 5MG/KG
     Route: 042
  2. INFLIXIMAB [Suspect]
     Indication: CROHN'S DISEASE
     Dosage: 1ST DOSE
     Route: 042
  3. ADALIMUMAB [Suspect]
     Dosage: 4TH VISIT, 3RD DOSE
  4. ADALIMUMAB [Suspect]
     Dosage: 3RD VISIT, 2ND DOSE
  5. ADALIMUMAB [Suspect]
     Indication: INFLAMMATORY BOWEL DISEASE
  6. AZATHIOPRINE [Suspect]
     Indication: COLITIS ULCERATIVE
  7. LERCANDIPIN [Concomitant]
  8. PIRETANIDE [Concomitant]
  9. DOXAZOSIN MESYLATE [Concomitant]

REACTIONS (6)
  - HEPATOSPLENIC T-CELL LYMPHOMA [None]
  - INFLAMMATORY BOWEL DISEASE [None]
  - PANCYTOPENIA [None]
  - PERITONITIS BACTERIAL [None]
  - PNEUMONIA FUNGAL [None]
  - SPLENECTOMY [None]
